FAERS Safety Report 14347070 (Version 1)
Quarter: 2018Q1

REPORT INFORMATION
  Report Type: Spontaneous
  Country: US (occurrence: US)
  Receive Date: 20180103
  Receipt Date: 20180103
  Transmission Date: 20180509
  Serious: No
  Sender: FDA-Public Use
  Company Number: US-PFIZER INC-2017555442

PATIENT
  Age: 83 Year
  Sex: Male
  Weight: 81.63 kg

DRUGS (8)
  1. TYVASO [Suspect]
     Active Substance: TREPROSTINIL
     Dosage: UNK, [INCREASE AS TOLERATED BY 1 BREATH (6 MICROGRAMS) PER TREATMENT AS TOLERATED AND DIRECTED]
  2. TYVASO [Suspect]
     Active Substance: TREPROSTINIL
     Dosage: 18-54 MICROGRAMS, 4X/DAY (QID)
     Route: 055
     Dates: start: 20170718
  3. ELIQUIS [Concomitant]
     Active Substance: APIXABAN
     Dosage: UNK
  4. TYVASO [Suspect]
     Active Substance: TREPROSTINIL
     Indication: PULMONARY ARTERIAL HYPERTENSION
     Dosage: 54 UG, 4X/DAY (9 BREATHS)(QID)
     Route: 055
     Dates: start: 20170718
  5. TYVASO [Suspect]
     Active Substance: TREPROSTINIL
     Dosage: 42 UG, 4X/DAY (7 BREATHS)(QID)
     Dates: start: 2017
  6. SILDENAFIL CITRATE. [Suspect]
     Active Substance: SILDENAFIL CITRATE
     Indication: PRODUCT USED FOR UNKNOWN INDICATION
     Dosage: UNK
  7. TYVASO [Suspect]
     Active Substance: TREPROSTINIL
     Dosage: 36 UG, 4X/DAY (6 BREATHS) (QID)
     Dates: start: 2017
  8. TYVASO [Suspect]
     Active Substance: TREPROSTINIL
     Dosage: UNK

REACTIONS (9)
  - Hypotension [Unknown]
  - Nausea [Unknown]
  - Headache [Unknown]
  - Drug ineffective [Unknown]
  - Epistaxis [Unknown]
  - Dysgeusia [Unknown]
  - Malaise [Unknown]
  - Dyspnoea [Unknown]
  - Decreased appetite [Unknown]

NARRATIVE: CASE EVENT DATE: 2017
